FAERS Safety Report 24190658 (Version 4)
Quarter: 2024Q4

REPORT INFORMATION
  Report Type: Spontaneous
  Country: PT (occurrence: PT)
  Receive Date: 20240808
  Receipt Date: 20241031
  Transmission Date: 20250115
  Serious: Yes (Other)
  Sender: MYLAN
  Company Number: PT-AUROBINDO-AUR-APL-2024-037201

PATIENT
  Age: 25 Year
  Sex: Male

DRUGS (12)
  1. RIBAVIRIN [Suspect]
     Active Substance: RIBAVIRIN
     Indication: Organising pneumonia
     Dosage: UNK
     Route: 065
  2. MYCOPHENOLATE MOFETIL [Suspect]
     Active Substance: MYCOPHENOLATE MOFETIL
     Indication: Immunosuppressant drug therapy
     Dosage: 750 MILLIGRAM, BID, 1500 MG QD
     Route: 065
  3. MYCOPHENOLATE MOFETIL [Suspect]
     Active Substance: MYCOPHENOLATE MOFETIL
     Dosage: 750 MILLIGRAM, BID (TWICE DAILY)
     Route: 065
  4. TACROLIMUS [Suspect]
     Active Substance: TACROLIMUS
     Indication: Immunosuppressant drug therapy
     Dosage: 6+5+6 MILLIGRAM
     Route: 065
  5. TACROLIMUS [Suspect]
     Active Substance: TACROLIMUS
     Indication: Immunosuppressant drug therapy
  6. PREDNISOLONE [Suspect]
     Active Substance: PREDNISOLONE
     Indication: Immunosuppressant drug therapy
     Dosage: 0.5 MILLIGRAM/KILOGRAM, ONCE A DAY (6+5+6 MILLIGRAM)
     Route: 065
  7. PREDNISOLONE [Suspect]
     Active Substance: PREDNISOLONE
     Indication: Immunosuppressant drug therapy
     Dosage: 5 MILLIGRAM
     Route: 065
  8. PREDNISOLONE [Suspect]
     Active Substance: PREDNISOLONE
     Dosage: 0.5 MILLIGRAM/KILOGRAM, QD
     Route: 065
  9. AMPHOTERICIN B [Concomitant]
     Active Substance: AMPHOTERICIN B
     Indication: Infection prophylaxis
     Dosage: UNK
     Route: 065
  10. LEVOFLOXACIN [Concomitant]
     Active Substance: LEVOFLOXACIN
     Indication: Evidence based treatment
     Dosage: 750 MILLIGRAM
     Route: 065
  11. COTRIMOXAZOLE [Concomitant]
     Active Substance: SULFAMETHOXAZOLE\TRIMETHOPRIM
     Indication: Infection prophylaxis
     Dosage: UNK
     Route: 065
  12. AMOXICILLIN AND CLAVULANATE POTASSIUM [Concomitant]
     Active Substance: AMOXICILLIN\CLAVULANATE POTASSIUM
     Indication: Cough
     Dosage: UNK
     Route: 065

REACTIONS (4)
  - Organising pneumonia [Recovering/Resolving]
  - Metapneumovirus infection [Recovering/Resolving]
  - Infection in an immunocompromised host [Recovering/Resolving]
  - Off label use [Unknown]
